FAERS Safety Report 6336551-2 (Version None)
Quarter: 2009Q3

REPORT INFORMATION
  Report Type: 
  Country: None (occurrence: None)
  Receive Date: 20090901
  Receipt Date: 20090824
  Transmission Date: 20100115
  Serious: Yes (Life-Threatening)
  Sender: FDA-Public Use
  Company Number: US-JNJFOC-20090900070

PATIENT
  Age: 52 Year

DRUGS (1)
  1. FENTANYL [Suspect]
     Indication: DRUG ABUSE
     Route: 048

REACTIONS (2)
  - INTENTIONAL DRUG MISUSE [None]
  - RESPIRATORY ARREST [None]
